FAERS Safety Report 7441773-3 (Version None)
Quarter: 2011Q2

REPORT INFORMATION
  Report Type: 
  Country: None (occurrence: None)
  Receive Date: 20110428
  Receipt Date: 20110418
  Transmission Date: 20111010
  Serious: Yes (Other)
  Sender: FDA-Public Use
  Company Number: CN-GENZYME-FLUD-1000829

PATIENT

DRUGS (4)
  1. FLUDARA [Suspect]
     Indication: NON-HODGKIN'S LYMPHOMA
     Dosage: 25 MG/M2, QD
     Route: 065
  2. NOVANTRONE [Suspect]
     Indication: NON-HODGKIN'S LYMPHOMA
     Dosage: 10 MG/M2, ONCE ON DAY 1
     Route: 065
  3. DEXAMETHASONE [Suspect]
     Indication: NON-HODGKIN'S LYMPHOMA
     Dosage: 20 MG, QD, ON DAY 1 - DAY 5, ONE CYCLE WAS 28 DAYS FOR A TOTAL OF SIX CYCLES
     Route: 065
  4. EPIRUBICIN [Suspect]
     Indication: NON-HODGKIN'S LYMPHOMA
     Dosage: 60 MG/M2, QD, ON DAY, ONE CYCLE WAS 28 DAYS FOR A TOTAL OF SIX CYCLES
     Route: 065

REACTIONS (12)
  - CARDIOTOXICITY [None]
  - NEUTROPENIA [None]
  - NUTRITIONAL CONDITION ABNORMAL [None]
  - TUBERCULOSIS [None]
  - INFECTION [None]
  - PNEUMONIA [None]
  - CYTOMEGALOVIRUS GASTRITIS [None]
  - THROMBOCYTOPENIA [None]
  - HEPATIC FUNCTION ABNORMAL [None]
  - LEUKOPENIA [None]
  - HERPES ZOSTER [None]
  - BONE MARROW FAILURE [None]
